FAERS Safety Report 10044524 (Version 1)
Quarter: 2014Q1

REPORT INFORMATION
  Report Type: Spontaneous
  Country: US (occurrence: None)
  Receive Date: 20140326
  Receipt Date: 20140326
  Transmission Date: 20141002
  Serious: Yes (Hospitalization)
  Sender: FDA-Public Use
  Company Number: COM-002076

PATIENT
  Age: 69 Year
  Sex: Female
  Weight: 77.11 kg

DRUGS (4)
  1. DOCUSATE SODIUM [Suspect]
     Indication: PAIN
     Dosage: TAKE 1 SOFTGEL DAILY
     Route: 048
     Dates: start: 201310
  2. DOCUSATE SODIUM [Suspect]
     Indication: FAECES HARD
     Dosage: TAKE 1 SOFTGEL DAILY
     Route: 048
     Dates: start: 201310
  3. PAIN RELIEF MEDICATION [Concomitant]
  4. MUSCLE RELAXERS [Concomitant]

REACTIONS (3)
  - Vomiting [None]
  - Diarrhoea [None]
  - Reaction to colouring [None]
